FAERS Safety Report 8127337-7 (Version None)
Quarter: 2012Q1

REPORT INFORMATION
  Report Type: 
  Country: None (occurrence: None)
  Receive Date: 20120210
  Receipt Date: 20120130
  Transmission Date: 20120608
  Serious: Yes (Other)
  Sender: FDA-Public Use
  Company Number: JP-BRISTOL-MYERS SQUIBB COMPANY-16362840

PATIENT
  Age: 50 Year
  Sex: Male

DRUGS (3)
  1. HALOPERIDOL [Suspect]
  2. ANTIPSYCHOTIC NOS [Concomitant]
  3. ABILIFY [Suspect]
     Indication: SCHIZOPHRENIA
     Route: 048

REACTIONS (1)
  - DELIRIUM [None]
